FAERS Safety Report 23701587 (Version 2)
Quarter: 2024Q2

REPORT INFORMATION
  Report Type: Spontaneous
  Country: RU (occurrence: RU)
  Receive Date: 20240403
  Receipt Date: 20240404
  Transmission Date: 20240716
  Serious: Yes (Other)
  Sender: FDA-Public Use
  Company Number: RU-009507513-2403RUS008268

PATIENT
  Age: 49 Year
  Sex: Male
  Weight: 88 kg

DRUGS (4)
  1. KEYTRUDA [Suspect]
     Active Substance: PEMBROLIZUMAB
     Indication: Renal cell carcinoma
     Dosage: 200 MILLIGRAM
     Route: 042
     Dates: start: 202308, end: 202402
  2. AXITINIB [Suspect]
     Active Substance: AXITINIB
     Indication: Renal cell carcinoma
     Dosage: 5 MILLIGRAM, BID
     Dates: start: 202308
  3. INSULIN DETEMIR [Concomitant]
     Active Substance: INSULIN DETEMIR
     Indication: Type 2 diabetes mellitus
     Dosage: 6 UNITS IN THE MORNING AND 10 UNITS IN THE EVENING,
     Dates: start: 2009
  4. INSULINA HUMALOG [Concomitant]
     Indication: Type 2 diabetes mellitus
     Dosage: 8-10 UNITS 2-3 TIMES A DAY
     Dates: start: 2009

REACTIONS (4)
  - Addison^s disease [Not Recovered/Not Resolved]
  - Adrenalectomy [Unknown]
  - Nephrectomy [Unknown]
  - Lymphadenectomy [Unknown]

NARRATIVE: CASE EVENT DATE: 20230807
